FAERS Safety Report 23318791 (Version 9)
Quarter: 2024Q4

REPORT INFORMATION
  Report Type: Spontaneous
  Country: FR (occurrence: FR)
  Receive Date: 20231220
  Receipt Date: 20241118
  Transmission Date: 20250115
  Serious: Yes (Hospitalization, Other)
  Sender: ORGANON
  Company Number: FR-AstraZeneca-2023A276404

PATIENT
  Age: 83 Year
  Sex: Male
  Weight: 110 kg

DRUGS (84)
  1. EZETIMIBE\SIMVASTATIN [Suspect]
     Active Substance: EZETIMIBE\SIMVASTATIN
     Indication: Product used for unknown indication
     Dosage: 10/40 MILLIGRAM, QD
     Route: 065
     Dates: start: 20231023
  2. EZETIMIBE\SIMVASTATIN [Suspect]
     Active Substance: EZETIMIBE\SIMVASTATIN
     Dosage: 10/40 MILLIGRAM, QD
     Route: 065
  3. CLINDAMYCIN HYDROCHLORIDE [Suspect]
     Active Substance: CLINDAMYCIN HYDROCHLORIDE
     Indication: Product used for unknown indication
     Dosage: UNK
     Route: 065
  4. CLINDAMYCIN HYDROCHLORIDE [Suspect]
     Active Substance: CLINDAMYCIN HYDROCHLORIDE
     Dosage: UNK
     Route: 065
  5. BISOPROLOL FUMARATE [Suspect]
     Active Substance: BISOPROLOL FUMARATE
     Indication: Product used for unknown indication
     Dosage: 1.25 MG, 1X/DAY
     Route: 048
  6. BISOPROLOL FUMARATE [Suspect]
     Active Substance: BISOPROLOL FUMARATE
     Dosage: 5 MG, 1X/DAY
     Route: 048
     Dates: start: 20231023
  7. BISOPROLOL FUMARATE [Suspect]
     Active Substance: BISOPROLOL FUMARATE
     Dosage: 5 MILLIGRAM, QD
     Route: 048
  8. URAPIDIL HYDROCHLORIDE [Suspect]
     Active Substance: URAPIDIL HYDROCHLORIDE
     Indication: Product used for unknown indication
     Dosage: 90 MG, 1X/DAY
     Route: 048
     Dates: start: 20231023
  9. URAPIDIL HYDROCHLORIDE [Suspect]
     Active Substance: URAPIDIL HYDROCHLORIDE
     Dosage: 90 MILLIGRAM, QD
     Route: 048
  10. LORAZEPAM [Suspect]
     Active Substance: LORAZEPAM
     Indication: Product used for unknown indication
     Dosage: 20 MG
     Route: 065
  11. LORAZEPAM [Suspect]
     Active Substance: LORAZEPAM
     Dosage: 20 MG
  12. CHOLECALCIFEROL [Suspect]
     Active Substance: CHOLECALCIFEROL
     Indication: Product used for unknown indication
     Dosage: UNK
     Route: 065
  13. CHOLECALCIFEROL [Suspect]
     Active Substance: CHOLECALCIFEROL
     Dosage: UNK
  14. TRETINOIN [Suspect]
     Active Substance: TRETINOIN
     Indication: Acute promyelocytic leukaemia
     Dosage: 10 MG, 1X/DAY
     Route: 048
     Dates: start: 20231106
  15. TRETINOIN [Suspect]
     Active Substance: TRETINOIN
     Indication: Hypertension
     Dosage: MORNING AND EVENING FROM D1 TO D14
     Route: 048
     Dates: start: 20231106
  16. TRETINOIN [Suspect]
     Active Substance: TRETINOIN
     Dosage: 50 MILLIGRAM
     Dates: start: 20230915
  17. TRETINOIN [Suspect]
     Active Substance: TRETINOIN
     Dosage: 22.5MG/M2 OR 50MG MORNING AND EVENING UNTIL D34
  18. TRETINOIN [Suspect]
     Active Substance: TRETINOIN
     Dosage: 10 MILLIGRAM, QD
  19. APIXABAN [Suspect]
     Active Substance: APIXABAN
     Indication: Product used for unknown indication
     Dosage: 5 MILLIGRAM, QD
     Route: 048
     Dates: start: 20231001
  20. APIXABAN [Suspect]
     Active Substance: APIXABAN
     Dosage: 5 MILLIGRAM, QD
     Route: 048
     Dates: start: 20231010
  21. APIXABAN [Suspect]
     Active Substance: APIXABAN
     Dosage: 2.5 MILLIGRAM, QD
     Route: 048
     Dates: start: 20231023
  22. LERCANIDIPINE HYDROCHLORIDE [Suspect]
     Active Substance: LERCANIDIPINE HYDROCHLORIDE
     Indication: Product used for unknown indication
     Dosage: 20 MG
     Route: 065
  23. LANSOPRAZOLE [Suspect]
     Active Substance: LANSOPRAZOLE
     Indication: Product used for unknown indication
     Dosage: 15 MG, 1X/DAY
     Route: 048
     Dates: start: 20231023
  24. ARSENIC TRIOXIDE [Suspect]
     Active Substance: ARSENIC TRIOXIDE
     Indication: Acute promyelocytic leukaemia
     Dosage: 17 MG, 1X/DAY
     Route: 065
     Dates: start: 20230915
  25. ARSENIC TRIOXIDE [Suspect]
     Active Substance: ARSENIC TRIOXIDE
     Indication: Acute myeloid leukaemia
     Dosage: 50 MILLIGRAM, QD
     Route: 065
     Dates: start: 20231106, end: 20231106
  26. ARSENIC TRIOXIDE [Suspect]
     Active Substance: ARSENIC TRIOXIDE
     Indication: Acute myeloid leukaemia
     Dosage: 30 MILLIGRAM, QD
     Route: 042
     Dates: start: 20231106, end: 20231106
  27. ARSENIC TRIOXIDE [Suspect]
     Active Substance: ARSENIC TRIOXIDE
     Dosage: 25 MG, 1X/DAY
     Route: 065
     Dates: start: 20231113
  28. ARSENIC TRIOXIDE [Suspect]
     Active Substance: ARSENIC TRIOXIDE
     Dosage: 50 MILLIGRAM, QD
     Route: 065
     Dates: start: 20231023
  29. ARSENIC TRIOXIDE [Suspect]
     Active Substance: ARSENIC TRIOXIDE
     Dosage: 25 MG, 1X/DAY
     Route: 065
     Dates: start: 20231023
  30. ARSENIC TRIOXIDE [Suspect]
     Active Substance: ARSENIC TRIOXIDE
     Dosage: 17 MG, 1X/DAY
     Route: 065
  31. ARSENIC TRIOXIDE [Suspect]
     Active Substance: ARSENIC TRIOXIDE
     Dosage: 50 MILLIGRAM
     Route: 065
     Dates: start: 20231106, end: 20231106
  32. ARSENIC TRIOXIDE [Suspect]
     Active Substance: ARSENIC TRIOXIDE
     Dosage: 25 MG, 1X/DAY
     Route: 065
     Dates: start: 20231113
  33. VALACYCLOVIR HYDROCHLORIDE [Suspect]
     Active Substance: VALACYCLOVIR HYDROCHLORIDE
     Indication: Infection
     Dosage: 1 GRAM, QD
     Route: 048
     Dates: start: 20230915
  34. VALACYCLOVIR HYDROCHLORIDE [Suspect]
     Active Substance: VALACYCLOVIR HYDROCHLORIDE
     Dosage: 1 GRAM, QD
     Route: 065
  35. PREDNISONE [Suspect]
     Active Substance: PREDNISONE
     Indication: Differentiation syndrome
     Dosage: UNK
     Route: 065
  36. PREDNISONE [Suspect]
     Active Substance: PREDNISONE
     Dosage: UNK
     Route: 065
  37. PREDNISONE [Suspect]
     Active Substance: PREDNISONE
     Dosage: UNK
     Route: 065
  38. PREDNISONE [Suspect]
     Active Substance: PREDNISONE
     Dosage: UNK
     Route: 065
  39. HERBALS\PLANTAGO OVATA SEED [Suspect]
     Active Substance: HERBALS\PLANTAGO OVATA SEED
     Indication: Product used for unknown indication
     Dosage: UNK
     Route: 065
  40. HERBALS\PLANTAGO OVATA SEED [Suspect]
     Active Substance: HERBALS\PLANTAGO OVATA SEED
     Dosage: UNK
     Route: 065
  41. ALLOPURINOL [Suspect]
     Active Substance: ALLOPURINOL
     Indication: Product used for unknown indication
     Dosage: 300 MG
     Route: 065
  42. CANDESARTAN [Suspect]
     Active Substance: CANDESARTAN
     Indication: Hypertension
     Dosage: 16 MILLIGRAM, QD
     Route: 048
     Dates: start: 20231023
  43. VALACYCLOVIR HYDROCHLORIDE [Suspect]
     Active Substance: VALACYCLOVIR HYDROCHLORIDE
     Indication: Infection
     Dosage: 1 GRAM, QD
     Route: 065
  44. VALACYCLOVIR HYDROCHLORIDE [Suspect]
     Active Substance: VALACYCLOVIR HYDROCHLORIDE
     Dosage: 1 GRAM, QD
     Route: 048
     Dates: start: 20230915
  45. FUROSEMIDE [Suspect]
     Active Substance: FUROSEMIDE
     Indication: Oedema peripheral
     Dosage: UNK
     Route: 065
     Dates: start: 20230919
  46. FUROSEMIDE [Suspect]
     Active Substance: FUROSEMIDE
     Indication: Oedema
     Dosage: 120 MG, 1X/DAY
     Route: 048
     Dates: start: 20231002
  47. FUROSEMIDE [Suspect]
     Active Substance: FUROSEMIDE
     Dosage: 120 MILLIGRAM, QD
     Route: 065
  48. FUROSEMIDE [Suspect]
     Active Substance: FUROSEMIDE
     Dosage: UNK
     Route: 065
  49. BENZOYL PEROXIDE\CLINDAMYCIN [Suspect]
     Active Substance: BENZOYL PEROXIDE\CLINDAMYCIN
     Indication: Product used for unknown indication
     Dosage: UNK
     Route: 065
  50. BENZOYL PEROXIDE\CLINDAMYCIN [Suspect]
     Active Substance: BENZOYL PEROXIDE\CLINDAMYCIN
     Dosage: UNK
     Dates: start: 20231106, end: 20231106
  51. ASPIRIN DL-LYSINE [Suspect]
     Active Substance: ASPIRIN DL-LYSINE
     Indication: Product used for unknown indication
     Dosage: 100 MG
     Route: 065
  52. PENICILLIN G BENZATHINE [Suspect]
     Active Substance: PENICILLIN G BENZATHINE
     Dosage: UNK
     Route: 065
  53. ELIQUIS [Suspect]
     Active Substance: APIXABAN
     Indication: Atrial fibrillation
     Dosage: 5 MG, 1X/DAY
     Route: 048
     Dates: start: 20231001
  54. ELIQUIS [Suspect]
     Active Substance: APIXABAN
     Dosage: 5 MG, 1X/DAY
     Route: 048
     Dates: start: 20231010
  55. ELIQUIS [Suspect]
     Active Substance: APIXABAN
     Dosage: 2.5 MG, 1X/DAY
     Route: 048
     Dates: start: 20231023
  56. CLINDAMYCIN [Suspect]
     Active Substance: CLINDAMYCIN
     Indication: Product used for unknown indication
     Dosage: UNK
  57. CLINDAMYCIN [Suspect]
     Active Substance: CLINDAMYCIN
     Indication: Infection
  58. FUROSEMIDE [Suspect]
     Active Substance: FUROSEMIDE
     Indication: Oedema peripheral
     Dosage: UNK
     Route: 048
     Dates: start: 20230919
  59. FUROSEMIDE [Suspect]
     Active Substance: FUROSEMIDE
     Dosage: 120 MG, 1X/DAY
     Route: 048
     Dates: start: 20231002
  60. ASPIRIN DL-LYSINE [Suspect]
     Active Substance: ASPIRIN DL-LYSINE
     Indication: Product used for unknown indication
     Dosage: 100 MILLIGRAM
  61. TRISENOX [Suspect]
     Active Substance: ARSENIC TRIOXIDE
     Indication: Acute promyelocytic leukaemia
     Dosage: 0.15MG/KG I.E. 17MG FROM D1 TO D33
     Dates: start: 20230915
  62. TRISENOX [Suspect]
     Active Substance: ARSENIC TRIOXIDE
     Indication: Electrocardiogram QT prolonged
     Dosage: 50 MILLIGRAM, QD
     Dates: start: 20231023
  63. TRISENOX [Suspect]
     Active Substance: ARSENIC TRIOXIDE
     Dosage: 50 MILLIGRAM, QD
     Route: 042
     Dates: start: 20231106, end: 20231106
  64. TRISENOX [Suspect]
     Active Substance: ARSENIC TRIOXIDE
     Dosage: STRENGTH 1 MG/ML
     Dates: start: 20231106
  65. TRISENOX [Suspect]
     Active Substance: ARSENIC TRIOXIDE
     Dosage: DOSE REDUCED TO 25MG ON 11/13 AND 11/14
     Dates: start: 20231113
  66. LERCANIDIPINE HYDROCHLORIDE [Suspect]
     Active Substance: LERCANIDIPINE HYDROCHLORIDE
     Dosage: 20 MILLIGRAM
  67. ASPIRIN DL-LYSINE [Suspect]
     Active Substance: ASPIRIN DL-LYSINE
     Dosage: MORNING
  68. SPAGULAX [Suspect]
     Active Substance: HERBALS\PLANTAGO OVATA SEED
     Dosage: UNK
  69. CLINDAMYCIN HYDROCHLORIDE [Suspect]
     Active Substance: CLINDAMYCIN HYDROCHLORIDE
  70. METEOSPASMYL (ALVERINE CITRATE\DIMETHICONE) [Concomitant]
     Active Substance: ALVERINE CITRATE\DIMETHICONE
     Indication: Product used for unknown indication
     Dosage: UNK
  71. METEOSPASMYL (ALVERINE CITRATE\DIMETHICONE) [Concomitant]
     Active Substance: ALVERINE CITRATE\DIMETHICONE
     Dosage: UNK
  72. ALVERINE CITRATE [Concomitant]
     Active Substance: ALVERINE CITRATE
     Indication: Product used for unknown indication
     Dosage: UNK
  73. ALVERINE CITRATE [Concomitant]
     Active Substance: ALVERINE CITRATE
     Dosage: UNK
  74. POTASSIUM CHLORIDE [Concomitant]
     Active Substance: POTASSIUM CHLORIDE
     Indication: Product used for unknown indication
     Dosage: UNK
     Dates: start: 20231023
  75. ZOLPIDEM [Concomitant]
     Active Substance: ZOLPIDEM TARTRATE
     Indication: Product used for unknown indication
     Dosage: 10 MG, 1X/DAY
     Route: 048
     Dates: start: 20231023
  76. TINZAPARIN [Concomitant]
     Active Substance: TINZAPARIN
     Indication: Product used for unknown indication
     Dosage: UNK
  77. TINZAPARIN [Concomitant]
     Active Substance: TINZAPARIN
     Dosage: UNK
  78. TINZAPARIN [Concomitant]
     Active Substance: TINZAPARIN
     Dosage: UNK
  79. POTASSIUM CHLORIDE [Concomitant]
     Active Substance: POTASSIUM CHLORIDE
     Indication: Product used for unknown indication
     Dosage: UNK
  80. POTASSIUM CHLORIDE [Concomitant]
     Active Substance: POTASSIUM CHLORIDE
     Dosage: UNK
  81. SIMETHICONE (DIMETHICONE) [Concomitant]
     Active Substance: DIMETHICONE
     Indication: Product used for unknown indication
     Dosage: UNK
     Route: 065
  82. SIMETHICONE (DIMETHICONE) [Concomitant]
     Active Substance: DIMETHICONE
     Dosage: UNK
  83. METEOSPASMIL [Concomitant]
     Indication: Product used for unknown indication
     Dosage: UNK
     Route: 065
  84. VESANOID [Concomitant]
     Active Substance: TRETINOIN
     Indication: Acute myeloid leukaemia
     Dosage: 100 MG, 1X/DAY
     Route: 048
     Dates: start: 20231106

REACTIONS (3)
  - Acute kidney injury [Recovered/Resolved]
  - Diarrhoea [Recovering/Resolving]
  - Off label use [Unknown]

NARRATIVE: CASE EVENT DATE: 20231107
